FAERS Safety Report 8137806-1 (Version None)
Quarter: 2012Q1

REPORT INFORMATION
  Report Type: 
  Country: None (occurrence: None)
  Receive Date: 20120215
  Receipt Date: 20120207
  Transmission Date: 20120608
  Serious: Yes (Other)
  Sender: FDA-Public Use
  Company Number: US-US-EMD SERONO, INC.-7111918

PATIENT
  Sex: Female

DRUGS (2)
  1. UNSPECIFIED MEDICATION [Concomitant]
  2. REBIF [Suspect]
     Indication: MULTIPLE SCLEROSIS
     Dates: start: 20090409

REACTIONS (5)
  - SCIATICA [None]
  - BRONCHITIS [None]
  - INTENTIONAL OVERDOSE [None]
  - SYSTEMIC INFLAMMATORY RESPONSE SYNDROME [None]
  - CONJUNCTIVITIS [None]
